FAERS Safety Report 7209125-9 (Version None)
Quarter: 2011Q1

REPORT INFORMATION
  Report Type: 
  Country: None (occurrence: None)
  Receive Date: 20110104
  Receipt Date: 20101224
  Transmission Date: 20110831
  Serious: Yes (Hospitalization)
  Sender: FDA-Public Use
  Company Number: IE-AMGEN-IRLSP2010012008

PATIENT

DRUGS (9)
  1. RANITIC [Concomitant]
  2. ASPIRIN [Concomitant]
  3. LIPITOR [Concomitant]
  4. OTHER OPHTHALMOLOGICALS [Concomitant]
  5. PLAVIX [Concomitant]
  6. BISOPROLOL FUMARATE [Concomitant]
  7. BISOPOL [Concomitant]
  8. ELANTAN [Concomitant]
  9. ARANESP [Suspect]
     Indication: PRODUCT USED FOR UNKNOWN INDICATION
     Dosage: 30 A?G, QWK
     Route: 058
     Dates: start: 20100623

REACTIONS (1)
  - MYOCARDIAL INFARCTION [None]
